FAERS Safety Report 12969264 (Version 1)
Quarter: 2016Q4

REPORT INFORMATION
  Report Type: Spontaneous
  Country: CA (occurrence: CA)
  Receive Date: 20161123
  Receipt Date: 20161123
  Transmission Date: 20170207
  Serious: Yes (Other)
  Sender: FDA-Public Use
  Company Number: CA-PURDUE PHARMA-CAN-2016-0007209

PATIENT
  Age: 36 Year
  Sex: Male

DRUGS (6)
  1. BIPHENTIN [Suspect]
     Active Substance: METHYLPHENIDATE
     Dosage: 200 MG DAILY (80 MG AM, 80 MG NOON,, 40 MG AT 6 PM)
     Route: 048
     Dates: start: 20161102
  2. BIPHENTIN [Suspect]
     Active Substance: METHYLPHENIDATE
     Indication: DISTURBANCE IN ATTENTION
     Dosage: 80 MG, DAILY
     Route: 048
     Dates: start: 201607
  3. BIPHENTIN [Suspect]
     Active Substance: METHYLPHENIDATE
     Indication: PRODUCT USED FOR UNKNOWN INDICATION
     Dosage: 560 MG, DAILY
     Route: 048
  4. FLUOXETINE [Concomitant]
     Active Substance: FLUOXETINE HYDROCHLORIDE
     Indication: DEPRESSION
     Dosage: 60 MG, UNK
     Route: 048
     Dates: start: 201607
  5. BIPHENTIN [Suspect]
     Active Substance: METHYLPHENIDATE
     Indication: FOETAL ALCOHOL SYNDROME
     Dosage: 160 MG DAILY (80MG AM, 80 MG NOON)
     Route: 048
  6. BIPHENTIN [Suspect]
     Active Substance: METHYLPHENIDATE
     Indication: IMPULSIVE BEHAVIOUR
     Dosage: 120 MG DAILY ( 80 MG AM, 40 MG NOON)
     Route: 048

REACTIONS (9)
  - Drug dependence [Unknown]
  - Drug abuse [Unknown]
  - Hallucination [Unknown]
  - Off label use [Unknown]
  - Palpitations [Unknown]
  - Dyspnoea [Unknown]
  - Disturbance in attention [Unknown]
  - Drug withdrawal syndrome [Unknown]
  - Tachyphrenia [Unknown]

NARRATIVE: CASE EVENT DATE: 20161102
